FAERS Safety Report 5300583-3 (Version None)
Quarter: 2007Q2

REPORT INFORMATION
  Report Type: 
  Country: None (occurrence: None)
  Receive Date: 20070418
  Receipt Date: 20070413
  Transmission Date: 20071010
  Serious: Yes (Hospitalization)
  Sender: FDA-Public Use
  Company Number: SE-GLAXOSMITHKLINE-B0437066A

PATIENT
  Age: 62 Year
  Sex: Female

DRUGS (1)
  1. ZYBAN [Suspect]
     Indication: SMOKING CESSATION THERAPY
     Route: 048
     Dates: start: 20060712, end: 20060718

REACTIONS (8)
  - AUTOIMMUNE DISORDER [None]
  - JOINT SWELLING [None]
  - LEUKOCYTOCLASTIC VASCULITIS [None]
  - NEPHRITIS [None]
  - OEDEMA PERIPHERAL [None]
  - RASH [None]
  - SKIN ULCER [None]
  - VASCULITIS [None]
